FAERS Safety Report 4834731-6 (Version None)
Quarter: 2005Q4

REPORT INFORMATION
  Report Type: 
  Country: None (occurrence: None)
  Receive Date: 20051122
  Receipt Date: 20050725
  Transmission Date: 20060501
  Serious: No
  Sender: FDA-Public Use
  Company Number: US-BRISTOL-MYERS SQUIBB COMPANY-13049499

PATIENT
  Age: 72 Year
  Sex: Female
  Weight: 58 kg

DRUGS (5)
  1. PRAVACHOL [Suspect]
     Indication: BLOOD CHOLESTEROL INCREASED
  2. NEXIUM [Concomitant]
  3. ATENOLOL [Concomitant]
     Dosage: 1 DOSAGE FORM = ONE-HALF TABLET DAILY
  4. SYNTHROID [Concomitant]
     Dosage: 1 DOSAGE FORM = ONE-HALF TABLET DAILY
  5. TIMOLOL MALEATE [Concomitant]
     Dosage: 1 DOSAGE FORM = ONE DROP IN EACH EYE TWICE A DAY
     Route: 047

REACTIONS (1)
  - DYSPEPSIA [None]
